FAERS Safety Report 8244732-6 (Version None)
Quarter: 2012Q1

REPORT INFORMATION
  Report Type: 
  Country: None (occurrence: None)
  Receive Date: 20120329
  Receipt Date: 20110228
  Transmission Date: 20120608
  Serious: Yes (Other)
  Sender: FDA-Public Use
  Company Number: US-MYLANLABS-2011S1004227

PATIENT
  Age: 65 Year
  Sex: Female
  Weight: 49.9 kg

DRUGS (7)
  1. FENTANYL-100 [Suspect]
     Indication: ARTHRITIS
     Dosage: CHANGED Q 72 HOURS.
     Route: 062
  2. LEXAPRO [Concomitant]
     Indication: DEPRESSION
     Route: 048
     Dates: start: 20010101
  3. ACTIQ [Concomitant]
     Indication: ARTHRITIS
     Route: 048
     Dates: start: 20060101
  4. ZOCOR [Concomitant]
     Indication: BLOOD CHOLESTEROL INCREASED
     Route: 048
     Dates: start: 20010101
  5. AMBIEN [Concomitant]
     Indication: INSOMNIA
     Route: 048
     Dates: start: 20010101
  6. NEXIUM [Concomitant]
     Indication: GASTROOESOPHAGEAL REFLUX DISEASE
     Route: 048
     Dates: start: 20060101
  7. PLAQUENIL [Concomitant]
     Indication: JUVENILE ARTHRITIS
     Route: 048
     Dates: start: 20010101

REACTIONS (5)
  - VOMITING [None]
  - NAUSEA [None]
  - ABDOMINAL PAIN [None]
  - PAIN [None]
  - DRUG INEFFECTIVE [None]
